FAERS Safety Report 7450421-8 (Version None)
Quarter: 2011Q2

REPORT INFORMATION
  Report Type: 
  Country: None (occurrence: None)
  Receive Date: 20110422
  Receipt Date: 20110411
  Transmission Date: 20111010
  Serious: Yes (Death)
  Sender: FDA-Public Use
  Company Number: 2011000888

PATIENT
  Age: 89 Year
  Sex: Female

DRUGS (12)
  1. MUCOSOLVAN (AMBROXOL HYDROCHLORIDE) [Concomitant]
  2. TARCEVA [Suspect]
     Indication: NON-SMALL CELL LUNG CANCER
     Dosage: SEE IMAGE
     Route: 048
     Dates: start: 20091015, end: 20091028
  3. TARCEVA [Suspect]
     Indication: NON-SMALL CELL LUNG CANCER
     Dosage: SEE IMAGE
     Route: 048
     Dates: start: 20091029, end: 20091109
  4. TARCEVA [Suspect]
     Indication: NON-SMALL CELL LUNG CANCER
     Dosage: SEE IMAGE
     Route: 048
     Dates: start: 20100804
  5. TARCEVA [Suspect]
     Indication: NON-SMALL CELL LUNG CANCER
     Dosage: SEE IMAGE
     Route: 048
     Dates: start: 20091110, end: 20100112
  6. TARCEVA [Suspect]
     Indication: NON-SMALL CELL LUNG CANCER
     Dosage: SEE IMAGE
     Route: 048
     Dates: start: 20100223, end: 20100713
  7. METHYCOBAL (MECOBALAMIN) [Concomitant]
  8. ROCALTROL [Concomitant]
  9. BROCIN-CODEINE (BROCIN-CODEINE) [Concomitant]
  10. MUCODYNE (CARBOCISTEINE) [Concomitant]
  11. ATELEC (CLINIDIPINE) [Concomitant]
  12. BONALON (ALENDRONIC ACID) [Concomitant]

REACTIONS (7)
  - RESPIRATORY FAILURE [None]
  - GASTRITIS [None]
  - CARDIAC FAILURE ACUTE [None]
  - ATELECTASIS [None]
  - NON-SMALL CELL LUNG CANCER [None]
  - PRURITUS [None]
  - DISEASE PROGRESSION [None]
